FAERS Safety Report 24917184 (Version 1)
Quarter: 2025Q1

REPORT INFORMATION
  Report Type: Spontaneous
  Country: PL (occurrence: PL)
  Receive Date: 20250203
  Receipt Date: 20250203
  Transmission Date: 20250409
  Serious: Yes (Other)
  Sender: REGENERON
  Company Number: PL-BAYER-2025A013410

PATIENT
  Sex: Female

DRUGS (1)
  1. EYLEA HD [Suspect]
     Active Substance: AFLIBERCEPT
     Indication: Age-related macular degeneration
     Dates: start: 20250120, end: 20250120

REACTIONS (3)
  - Sudden visual loss [Unknown]
  - Endophthalmitis [Unknown]
  - Vitritis [Unknown]

NARRATIVE: CASE EVENT DATE: 20250123
